FAERS Safety Report 23538126 (Version 1)
Quarter: 2024Q1

REPORT INFORMATION
  Report Type: Spontaneous
  Country: US (occurrence: US)
  Receive Date: 20240219
  Receipt Date: 20240219
  Transmission Date: 20240410
  Serious: No
  Sender: FDA-Public Use
  Company Number: US-SA-SAC20240215001720

PATIENT
  Age: 61 Year
  Sex: Male

DRUGS (2)
  1. ALPROLIX [Suspect]
     Active Substance: EFTRENONACOG ALFA
     Indication: Factor IX deficiency
     Dosage: 5000 IU (4500-5500) ON FRIDAYS AND EVERY 48 HOURS AS DIRECTED FOR BLEEDS OR TRAUMA
     Route: 041
     Dates: start: 201901
  2. ALPROLIX [Suspect]
     Active Substance: EFTRENONACOG ALFA
     Indication: Factor IX deficiency
     Dosage: 5000 IU (4500-5500) ON FRIDAYS AND EVERY 48 HOURS AS DIRECTED FOR BLEEDS OR TRAUMA
     Route: 041
     Dates: start: 201901

REACTIONS (1)
  - Haemorrhage [Recovered/Resolved]

NARRATIVE: CASE EVENT DATE: 20240109
